FAERS Safety Report 13046904 (Version 8)
Quarter: 2017Q3

REPORT INFORMATION
  Report Type: Report from Study
  Country: US (occurrence: US)
  Receive Date: 20161220
  Receipt Date: 20170912
  Transmission Date: 20171127
  Serious: Yes (Hospitalization, Other)
  Sender: FDA-Public Use
  Company Number: US-JNJFOC-20161111162

PATIENT
  Age: 74 Year
  Sex: Male

DRUGS (11)
  1. IMBRUVICA [Suspect]
     Active Substance: IBRUTINIB
     Indication: CHRONIC LYMPHOCYTIC LEUKAEMIA
     Route: 048
     Dates: start: 20161024, end: 20161201
  2. ACYCLOVIR. [Concomitant]
     Active Substance: ACYCLOVIR
  3. LIPITOR [Concomitant]
     Active Substance: ATORVASTATIN CALCIUM
  4. VITAMIN D3 [Concomitant]
     Active Substance: CHOLECALCIFEROL
  5. MORNIFLUMATE [Concomitant]
     Active Substance: MORNIFLUMATE
  6. CIALIS [Concomitant]
     Active Substance: TADALAFIL
  7. VALACYCLOVIR [Concomitant]
     Active Substance: VALACYCLOVIR HYDROCHLORIDE
  8. SYNTHROID [Concomitant]
     Active Substance: LEVOTHYROXINE SODIUM
  9. IMBRUVICA [Suspect]
     Active Substance: IBRUTINIB
     Indication: CHRONIC LYMPHOCYTIC LEUKAEMIA
     Route: 048
     Dates: start: 201612
  10. NEULASTA [Suspect]
     Active Substance: PEGFILGRASTIM
     Indication: PRODUCT USED FOR UNKNOWN INDICATION
     Route: 065
  11. ALLOPURINOL. [Concomitant]
     Active Substance: ALLOPURINOL
     Dates: end: 201701

REACTIONS (21)
  - Peripheral swelling [Unknown]
  - Mucosal dryness [Recovered/Resolved]
  - Platelet count abnormal [Recovering/Resolving]
  - Bursitis [Unknown]
  - Localised infection [Unknown]
  - Fluid replacement [Not Recovered/Not Resolved]
  - Proctalgia [Unknown]
  - Haematochezia [Not Recovered/Not Resolved]
  - Constipation [Recovering/Resolving]
  - Folliculitis [Not Recovered/Not Resolved]
  - Chest pain [Not Recovered/Not Resolved]
  - Joint swelling [Unknown]
  - Arthritis infective [Unknown]
  - Ear haemorrhage [Not Recovered/Not Resolved]
  - Nasal dryness [Recovered/Resolved]
  - Genital rash [Recovered/Resolved]
  - Hospitalisation [Not Recovered/Not Resolved]
  - Rectal fissure [Unknown]
  - Dyspepsia [Not Recovered/Not Resolved]
  - White blood cell count abnormal [Unknown]
  - Hypertension [Unknown]

NARRATIVE: CASE EVENT DATE: 20161126
